FAERS Safety Report 8520128-4 (Version None)
Quarter: 2012Q3

REPORT INFORMATION
  Report Type: 
  Country: None (occurrence: None)
  Receive Date: 20120719
  Receipt Date: 20120709
  Transmission Date: 20120928
  Serious: No
  Sender: FDA-Public Use
  Company Number: US-009507513-1207USA002610

PATIENT

DRUGS (3)
  1. VICTRELIS [Suspect]
     Dosage: UNK
     Route: 058
     Dates: start: 20120116
  2. RIBASPHERE [Suspect]
  3. PEG-INTRON [Suspect]
     Indication: HEPATITIS C
     Dosage: 150 MICROGRAM, QW
     Dates: start: 20111228

REACTIONS (2)
  - VIRAL LOAD INCREASED [None]
  - ANAEMIA [None]
